FAERS Safety Report 25449014 (Version 1)
Quarter: 2025Q2

REPORT INFORMATION
  Report Type: Spontaneous
  Country: CN (occurrence: CN)
  Receive Date: 20250618
  Receipt Date: 20250618
  Transmission Date: 20250717
  Serious: Yes (Other)
  Sender: JIANGSU HENGRUI
  Company Number: CN-JIANGSU HENGRUI PHARMACEUTICALS CO., LTD.-H2025219310

PATIENT
  Age: 2 Year
  Weight: 11 kg

DRUGS (2)
  1. THIOTEPA [Suspect]
     Active Substance: THIOTEPA
     Indication: Atypical teratoid/rhabdoid tumour of CNS
  2. SODIUM CHLORIDE [Concomitant]
     Active Substance: SODIUM CHLORIDE
     Indication: Vehicle solution use

REACTIONS (1)
  - Hepatic enzyme increased [Recovering/Resolving]
